FAERS Safety Report 7057330-7 (Version None)
Quarter: 2010Q4

REPORT INFORMATION
  Report Type: 
  Country: None (occurrence: None)
  Receive Date: 20101021
  Receipt Date: 20101021
  Transmission Date: 20110411
  Serious: Yes (Death, Hospitalization)
  Sender: FDA-Public Use
  Company Number: None

PATIENT
  Age: 77 Year
  Sex: Male
  Weight: 96.3 kg

DRUGS (1)
  1. HYDRALAZINE HCL 25MG TAB [Suspect]
     Indication: HYPERTENSION
     Dosage: 25 MG TID PO
     Route: 048
     Dates: start: 20100821, end: 20101007

REACTIONS (2)
  - NEPHROTIC SYNDROME [None]
  - RENAL FAILURE ACUTE [None]
